FAERS Safety Report 12418955 (Version 1)
Quarter: 2016Q2

REPORT INFORMATION
  Report Type: Spontaneous
  Country: US (occurrence: None)
  Receive Date: 20160527
  Receipt Date: 20160527
  Transmission Date: 20160815
  Serious: Yes (Disabling)
  Sender: FDA-Public Use
  Company Number: None

PATIENT
  Age: 66 Year
  Sex: Female
  Weight: 51.71 kg

DRUGS (5)
  1. CALCIUM [Concomitant]
     Active Substance: CALCIUM
  2. CLONAZEPAM. [Suspect]
     Active Substance: CLONAZEPAM
     Indication: NECK PAIN
     Route: 048
  3. B VITAMINS [Concomitant]
     Active Substance: CYANOCOBALAMIN\DEXPANTHENOL\NIACINAMIDE\PYRIDOXINE HYDROCHLORIDE\RIBOFLAVIN 5^-PHOSPHATE SODIUM\THIAMINE HYDROCHLORIDE\VITAMIN B COMPLEX
  4. MULTI [Concomitant]
  5. EVENING PRIM ROSE [Concomitant]

REACTIONS (7)
  - Drug ineffective [None]
  - Drug withdrawal syndrome [None]
  - Oral discomfort [None]
  - Fatigue [None]
  - Feeling of despair [None]
  - Product quality issue [None]
  - Malaise [None]

NARRATIVE: CASE EVENT DATE: 20160425
